FAERS Safety Report 20120926 (Version 1)
Quarter: 2021Q4

REPORT INFORMATION
  Report Type: Spontaneous
  Country: US (occurrence: US)
  Receive Date: 20211127
  Receipt Date: 20211127
  Transmission Date: 20220303
  Serious: No
  Sender: FDA-Public Use
  Company Number: US-GLAXOSMITHKLINE-US2021AMR241293

PATIENT
  Sex: Female

DRUGS (1)
  1. ELLIPTA INHALER NOS [Suspect]
     Active Substance: FLUTICASONE FUROATE OR UMECLIDINIUM BROMIDE OR VILANTEROL TRIFENATATE
     Indication: Product used for unknown indication
     Dosage: UNK

REACTIONS (3)
  - Dyspnoea [Recovered/Resolved]
  - Parosmia [Recovered/Resolved]
  - Dry skin [Unknown]
